FAERS Safety Report 16375549 (Version 1)
Quarter: 2019Q2

REPORT INFORMATION
  Report Type: Spontaneous
  Country: US (occurrence: US)
  Receive Date: 20190531
  Receipt Date: 20190531
  Transmission Date: 20190711
  Serious: Yes (Other)
  Sender: FDA-Public Use
  Company Number: US-TEVA-2019-US-1054745

PATIENT
  Sex: Female

DRUGS (1)
  1. RECLIPSEN [Suspect]
     Active Substance: DESOGESTREL\ETHINYL ESTRADIOL
     Dosage: DOSE STRENGTH:  0.15/0.03 MG/ 15MG - 30MCG
     Route: 065

REACTIONS (1)
  - Coeliac disease [Unknown]
